FAERS Safety Report 10023551 (Version 1)
Quarter: 2014Q1

REPORT INFORMATION
  Report Type: Spontaneous
  Country: JP (occurrence: None)
  Receive Date: 20140106
  Receipt Date: 20140106
  Transmission Date: 20141002
  Serious: Yes (Hospitalization)
  Sender: FDA-Public Use
  Company Number: JP-RRD-13-00038

PATIENT
  Age: 10 Month
  Sex: Male
  Weight: 8.3 kg

DRUGS (11)
  1. COSMEGEN [Suspect]
     Indication: NEPHROBLASTOMA
     Route: 042
     Dates: start: 20080104, end: 20080104
  2. ONCOVIN [Suspect]
     Indication: NEPHROBLASTOMA
     Route: 042
     Dates: start: 20080104, end: 20080111
  3. ZOFRAN [Concomitant]
  4. REMINARON [Concomitant]
  5. KENKETSU VENILON-I [Concomitant]
  6. ACICLOVIR [Concomitant]
  7. FIRSTCIN [Concomitant]
  8. SOLU-CORTEF [Concomitant]
  9. DALTEPARIN [Concomitant]
  10. GASTER [Concomitant]
  11. PLATELETS [Concomitant]

REACTIONS (3)
  - Venoocclusive liver disease [None]
  - Histiocytosis haematophagic [None]
  - Pleural effusion [None]
